FAERS Safety Report 22111477 (Version 1)
Quarter: 2023Q1

REPORT INFORMATION
  Report Type: Spontaneous
  Country: US (occurrence: US)
  Receive Date: 20230317
  Receipt Date: 20230317
  Transmission Date: 20230417
  Serious: No
  Sender: FDA-Public Use
  Company Number: US-009507513-2303USA003766

PATIENT
  Age: 87 Year
  Sex: Male

DRUGS (1)
  1. BELSOMRA [Suspect]
     Active Substance: SUVOREXANT
     Dosage: UNKNOWN DOSE NIGHTLY
     Route: 048
     Dates: start: 20230302

REACTIONS (2)
  - Therapeutic product effect decreased [Not Recovered/Not Resolved]
  - Somnolence [Not Recovered/Not Resolved]

NARRATIVE: CASE EVENT DATE: 20230301
